FAERS Safety Report 5960920-3 (Version None)
Quarter: 2008Q4

REPORT INFORMATION
  Report Type: 
  Country: None (occurrence: None)
  Receive Date: 20081121
  Receipt Date: 20081117
  Transmission Date: 20090506
  Serious: Yes (Disabling, Other)
  Sender: FDA-Public Use
  Company Number: US-JNJFOC-20080703297

PATIENT
  Sex: Male
  Weight: 79.38 kg

DRUGS (13)
  1. LEVAQUIN [Suspect]
     Indication: PNEUMONIA
     Route: 048
  2. ADVAIR DISKUS 100/50 [Concomitant]
     Indication: PNEUMONIA
     Route: 055
  3. ASPIRIN [Concomitant]
     Indication: PROPHYLAXIS
     Route: 048
  4. FISH OIL [Concomitant]
     Indication: PROPHYLAXIS
     Route: 048
  5. LIPITOR [Concomitant]
     Indication: BLOOD CHOLESTEROL
     Route: 048
  6. MULTI-VITAMIN [Concomitant]
     Indication: PROPHYLAXIS
     Route: 048
  7. GABAPENTIN [Concomitant]
     Indication: NEUROPATHY PERIPHERAL
  8. METOPROLOL TARTRATE [Concomitant]
     Indication: CARDIAC DISORDER
     Route: 048
  9. MIRALAX [Concomitant]
     Indication: CONSTIPATION
     Route: 048
  10. OXYCONTIN [Concomitant]
     Indication: PAIN
     Route: 048
  11. PREDNISONE TAB [Concomitant]
     Route: 048
  12. BACTRIM [Concomitant]
     Route: 048
  13. AREDIA [Concomitant]
     Indication: BONE DISORDER
     Route: 065

REACTIONS (5)
  - ATROPHY [None]
  - HAEMOGLOBIN DECREASED [None]
  - PLASMACYTOMA [None]
  - TENDON RUPTURE [None]
  - THROMBOSIS [None]
